FAERS Safety Report 6417262-1 (Version None)
Quarter: 2009Q4

REPORT INFORMATION
  Report Type: 
  Country: None (occurrence: None)
  Receive Date: 20091027
  Receipt Date: 20091027
  Transmission Date: 20100525
  Serious: Yes (Other)
  Sender: FDA-Public Use
  Company Number: None

PATIENT
  Age: 61 Year
  Sex: Female
  Weight: 77.1115 kg

DRUGS (2)
  1. SEPTRA DS [Suspect]
     Indication: CYSTITIS
     Dosage: 10 PILLS 1 PILL TWICE DAILY
     Dates: start: 20091019, end: 20091024
  2. SEPTRA DS [Suspect]
     Indication: URINARY TRACT INFECTION
     Dosage: 10 PILLS 1 PILL TWICE DAILY
     Dates: start: 20091019, end: 20091024

REACTIONS (10)
  - BLOOD PRESSURE INCREASED [None]
  - CHILLS [None]
  - DYSPNOEA [None]
  - HEART RATE INCREASED [None]
  - HYPOAESTHESIA [None]
  - IMPAIRED WORK ABILITY [None]
  - PAIN [None]
  - PALPITATIONS [None]
  - RASH [None]
  - URTICARIA [None]
